FAERS Safety Report 4775256-6 (Version None)
Quarter: 2005Q3

REPORT INFORMATION
  Report Type: 
  Country: None (occurrence: None)
  Receive Date: 20050921
  Receipt Date: 20031030
  Transmission Date: 20060218
  Serious: Yes (Death, Life-Threatening, Hospitalization)
  Sender: FDA-Public Use
  Company Number: GB-SANOFI-SYNTHELABO-D01200301556

PATIENT
  Sex: Male
  Weight: 110.2 kg

DRUGS (14)
  1. SR57746 OR PLACEBO [Suspect]
     Indication: NEUROTOXICITY
     Route: 048
     Dates: start: 20030129, end: 20031111
  2. OXALIPLATIN [Suspect]
     Route: 042
     Dates: start: 20031027, end: 20031027
  3. FLUOROURACIL [Suspect]
     Dosage: 400 MG/M2 AS IV BOLUS THEN 600 MG/M2 AS 22 HOURS CONTINUOUS INFUSION D1-D2 Q2W
     Route: 042
     Dates: start: 20031027, end: 20031028
  4. LEUCOVORIN [Suspect]
     Dosage: 200 MG/M2 AS 2 HOURS INFUSION ON D1-D2 Q2W
     Route: 042
     Dates: start: 20031027, end: 20031028
  5. ALLOPURINOL [Concomitant]
     Indication: GOUT
     Dosage: 1 UNIT
     Route: 048
  6. LANSOPRAZOLE [Concomitant]
     Indication: GASTROOESOPHAGEAL REFLUX DISEASE
     Dosage: 1 UNIT
     Route: 048
  7. ATENOLOL [Concomitant]
     Indication: BLOOD PRESSURE
     Dosage: 1 UNIT
     Route: 048
  8. ASPIRIN [Concomitant]
     Indication: ANTICOAGULANT THERAPY
     Dosage: 1 UNIT
     Route: 048
  9. LISINOPRIL [Concomitant]
     Indication: BLOOD PRESSURE
     Dosage: 1 UNIT
     Route: 048
  10. SIMVASTATIN [Concomitant]
     Indication: BLOOD CHOLESTEROL
     Dosage: 1 UNIT
     Route: 048
  11. CLOPIDOGREL [Concomitant]
     Indication: ANTICOAGULANT THERAPY
     Dosage: 1 UNIT
     Route: 048
  12. ISOSORBIDE MONONITRATE [Concomitant]
     Indication: CHEST PAIN
     Dosage: 1 UNIT
     Route: 048
  13. FUROSEMIDE [Concomitant]
     Dosage: 1 UNIT
     Route: 048
  14. NITROLINGUAL [Concomitant]
     Indication: CHEST PAIN

REACTIONS (6)
  - ANGINA PECTORIS [None]
  - BLOOD GLUCOSE INCREASED [None]
  - CORONARY ARTERY DISEASE [None]
  - CORONARY ARTERY STENOSIS [None]
  - MYOCARDIAL INFARCTION [None]
  - STENT OCCLUSION [None]
